FAERS Safety Report 9106336 (Version 4)
Quarter: 2013Q2

REPORT INFORMATION
  Report Type: Spontaneous
  Country: FR (occurrence: FR)
  Receive Date: 20130221
  Receipt Date: 20130516
  Transmission Date: 20140414
  Serious: Yes (Life-Threatening, Hospitalization)
  Sender: FDA-Public Use
  Company Number: FR-ROCHE-1192721

PATIENT
  Age: 60 Year
  Sex: Male
  Weight: 93.5 kg

DRUGS (6)
  1. ACTILYSE [Suspect]
     Indication: DEVICE OCCLUSION
     Route: 042
     Dates: start: 20120827, end: 20120827
  2. JOSIR [Concomitant]
  3. KAYEXALATE [Concomitant]
  4. INEXIUM [Concomitant]
  5. RENAGEL [Concomitant]
  6. ALFACALCIDOL [Concomitant]

REACTIONS (7)
  - Anaphylactic shock [Recovered/Resolved]
  - Circulatory collapse [Recovered/Resolved]
  - Hypotension [Recovered/Resolved]
  - Dyspnoea [Recovered/Resolved]
  - Loss of consciousness [Recovered/Resolved]
  - Malaise [Recovered/Resolved]
  - Rash [Recovered/Resolved]
